FAERS Safety Report 6202871-5 (Version None)
Quarter: 2009Q2

REPORT INFORMATION
  Report Type: 
  Country: None (occurrence: None)
  Receive Date: 20090520
  Receipt Date: 20090505
  Transmission Date: 20091009
  Serious: Yes (Other)
  Sender: FDA-Public Use
  Company Number: 09-000760

PATIENT
  Age: 44 Year
  Sex: Female

DRUGS (2)
  1. DOVONEX [Suspect]
     Indication: PSORIASIS
     Dosage: TOPICAL ; APPLY TO FACE TWICE DAILY
     Route: 061
     Dates: start: 20090417, end: 20090420
  2. DOVONEX [Suspect]
     Indication: PSORIASIS
     Dosage: TOPICAL ; APPLY TO FACE TWICE DAILY
     Route: 061
     Dates: start: 20090318

REACTIONS (2)
  - DRUG ADMINISTERED AT INAPPROPRIATE SITE [None]
  - PHOTOSENSITIVITY REACTION [None]
